FAERS Safety Report 5963875-0 (Version None)
Quarter: 2008Q4

REPORT INFORMATION
  Report Type: 
  Country: None (occurrence: None)
  Receive Date: 20081121
  Receipt Date: 20081121
  Transmission Date: 20090506
  Serious: Yes (Other)
  Sender: FDA-Public Use
  Company Number: None

PATIENT
  Sex: Female

DRUGS (1)
  1. OPTIRAY 320 [Suspect]
     Dosage: 80ML  2ML IV
     Route: 042
     Dates: start: 20081104

REACTIONS (2)
  - CONTRAST MEDIA ALLERGY [None]
  - URTICARIA [None]
